FAERS Safety Report 4678007-9 (Version None)
Quarter: 2005Q2

REPORT INFORMATION
  Report Type: 
  Country: None (occurrence: None)
  Receive Date: 20050531
  Receipt Date: 20050516
  Transmission Date: 20051028
  Serious: Yes (Hospitalization, Disabling, Other)
  Sender: FDA-Public Use
  Company Number: 2005GB00960

PATIENT
  Age: 67 Year
  Sex: Male

DRUGS (5)
  1. ZOLADEX [Suspect]
     Indication: PROSTATE CANCER
     Route: 058
     Dates: start: 20040101, end: 20050101
  2. TEMAZEPAM [Concomitant]
     Indication: INSOMNIA
     Route: 048
  3. RANITIDINE [Concomitant]
     Indication: DYSPNOEA
     Route: 048
  4. MELOXICAM [Concomitant]
     Indication: OSTEOARTHRITIS
     Route: 048
  5. AMLODIPINE [Concomitant]
     Indication: HYPERTENSION
     Route: 048

REACTIONS (1)
  - PARESIS [None]
